FAERS Safety Report 8370050-1 (Version None)
Quarter: 2012Q2

REPORT INFORMATION
  Report Type: 
  Country: None (occurrence: None)
  Receive Date: 20120518
  Receipt Date: 20120517
  Transmission Date: 20120825
  Serious: Yes (Death)
  Sender: FDA-Public Use
  Company Number: PHEH2012US010323

PATIENT
  Sex: Male

DRUGS (15)
  1. PRILOSEC [Concomitant]
     Dosage: 40 MG, UNK
  2. FISH OIL [Concomitant]
  3. TRAZODONE HCL [Concomitant]
     Dosage: 50 MG, UNK
  4. WARFARIN SODIUM [Concomitant]
     Dosage: 5 MG, UNK
  5. ANALGESICS [Concomitant]
     Dosage: 500 MG, UNK
  6. TERAZOSIN HCL [Concomitant]
     Dosage: 5 MG, UNK
  7. MUCINEX [Concomitant]
     Dosage: 1200 MG, UNK
  8. METOPROLOL [Concomitant]
     Dosage: 25 MG, UNK
  9. PROSCAR [Concomitant]
     Dosage: 5 MG, UNK
  10. AFINITOR [Suspect]
     Dosage: 10 MG, DAILY
     Route: 048
  11. BENADRYL [Concomitant]
     Dosage: 25 MG, UNK
  12. GABAPENTIN [Concomitant]
     Dosage: 100 MG, UNK
  13. DECADRON [Concomitant]
     Dosage: 0.5 MG, UNK
  14. MULTI-VITAMINS [Concomitant]
  15. VITAMIN D [Concomitant]
     Dosage: 1000 U, UNK

REACTIONS (1)
  - DEATH [None]
